FAERS Safety Report 18452904 (Version 1)
Quarter: 2020Q4

REPORT INFORMATION
  Report Type: Report from Study
  Country: CA (occurrence: CA)
  Receive Date: 20201102
  Receipt Date: 20201102
  Transmission Date: 20210114
  Serious: Yes (Other)
  Sender: FDA-Public Use
  Company Number: CA-JNJFOC-20201041419

PATIENT
  Age: 8 Decade
  Sex: Male
  Weight: 102.15 kg

DRUGS (1)
  1. REMICADE [Suspect]
     Active Substance: INFLIXIMAB
     Indication: CROHN^S DISEASE
     Dosage: ON 22-OCT-2020, THE PATIENT RECEIVED 26TH INFLIXIMAB INFUSION 500 MG
     Route: 042
     Dates: start: 20160125

REACTIONS (1)
  - Skin cancer [Recovering/Resolving]
